FAERS Safety Report 7577545-9 (Version None)
Quarter: 2011Q2

REPORT INFORMATION
  Report Type: 
  Country: None (occurrence: None)
  Receive Date: 20110628
  Receipt Date: 20110614
  Transmission Date: 20111010
  Serious: Yes (Other)
  Sender: FDA-Public Use
  Company Number: IE-JNJFOC-20110607638

PATIENT

DRUGS (4)
  1. MESALAMINE [Concomitant]
  2. INFLIXIMAB, RECOMBINANT [Suspect]
     Indication: COLITIS
     Route: 042
  3. IMMUNOSUPPRESSIVE THERAPY [Concomitant]
  4. HYDROCORTISONE [Concomitant]
     Indication: PREMEDICATION

REACTIONS (2)
  - COLON NEOPLASM [None]
  - DRUG INEFFECTIVE [None]
